FAERS Safety Report 14245598 (Version 3)
Quarter: 2018Q1

REPORT INFORMATION
  Report Type: Spontaneous
  Country: US (occurrence: US)
  Receive Date: 20171203
  Receipt Date: 20180206
  Transmission Date: 20180508
  Serious: Yes (Hospitalization)
  Sender: FDA-Public Use
  Company Number: US-BIOGEN-2017BI00488726

PATIENT
  Sex: Male
  Weight: 49.03 kg

DRUGS (2)
  1. SPINRAZA [Suspect]
     Active Substance: NUSINERSEN
     Indication: SPINAL MUSCULAR ATROPHY
     Route: 037
     Dates: start: 20170412, end: 20170927
  2. SPINRAZA [Suspect]
     Active Substance: NUSINERSEN
     Route: 037
     Dates: start: 20180124

REACTIONS (1)
  - Scoliosis [Recovered/Resolved]
